FAERS Safety Report 8097047 (Version 4)
Quarter: 2013Q1

REPORT INFORMATION
  Report Type: Spontaneous
  Country: US (occurrence: US)
  Receive Date: 20110818
  Receipt Date: 20130211
  Transmission Date: 20140127
  Serious: Yes (Hospitalization, Other)
  Sender: FDA-Public Use
  Company Number: US-ASTRAZENECA-2011SE47793

PATIENT
  Age: 59 Year
  Sex: Female

DRUGS (2)
  1. SYMBICORT PMDI [Suspect]
     Route: 055
  2. ACCOLATE [Suspect]
     Route: 048

REACTIONS (5)
  - Ankle fracture [Unknown]
  - Chronic obstructive pulmonary disease [Unknown]
  - Multiple sclerosis [Unknown]
  - Malaise [Unknown]
  - Rheumatoid arthritis [Unknown]
